FAERS Safety Report 17289494 (Version 2)
Quarter: 2020Q1

REPORT INFORMATION
  Report Type: Report from Study
  Country: JP (occurrence: JP)
  Receive Date: 20200120
  Receipt Date: 20200310
  Transmission Date: 20200409
  Serious: Yes (Hospitalization)
  Sender: FDA-Public Use
  Company Number: JP-ACTELION-A-CH2020-200577

PATIENT
  Age: 34 Year
  Sex: Female

DRUGS (8)
  1. FERROUS CITRATE NA [Concomitant]
     Active Substance: SODIUM FERROUS CITRATE
  2. WARFARIN [Suspect]
     Active Substance: WARFARIN
     Dosage: 0.5 MG, QD
     Route: 048
     Dates: start: 20150119, end: 20170901
  3. LANSOPRAZOLE. [Concomitant]
     Active Substance: LANSOPRAZOLE
  4. OPSUMIT [Suspect]
     Active Substance: MACITENTAN
     Indication: PULMONARY ARTERIAL HYPERTENSION
     Dosage: 10 MG, QD
     Route: 048
     Dates: start: 20170110
  5. TAKEPRON [Concomitant]
     Active Substance: LANSOPRAZOLE
  6. BUFFERIN [Concomitant]
     Active Substance: ASPIRIN
  7. WARFARIN [Suspect]
     Active Substance: WARFARIN
     Indication: CEREBRAL INFARCTION
     Dosage: 6 MG, QD
     Route: 048
     Dates: start: 20150119, end: 20170901
  8. OPSUMIT [Suspect]
     Active Substance: MACITENTAN
     Dosage: 5 MG, QD
     Route: 048
     Dates: start: 20161108, end: 20170109

REACTIONS (5)
  - Ovarian haemorrhage [Recovered/Resolved]
  - Transfusion [Unknown]
  - Prothrombin time ratio increased [Recovered/Resolved]
  - Ileus [Recovered/Resolved]
  - Nasopharyngitis [Recovered/Resolved]

NARRATIVE: CASE EVENT DATE: 20170711
